FAERS Safety Report 7077824-8 (Version None)
Quarter: 2010Q4

REPORT INFORMATION
  Report Type: 
  Country: None (occurrence: None)
  Receive Date: 20101101
  Receipt Date: 20101021
  Transmission Date: 20110411
  Serious: Yes (Hospitalization, Other)
  Sender: FDA-Public Use
  Company Number: PHHY2008CA22237

PATIENT
  Sex: Male

DRUGS (3)
  1. SANDOSTATIN LAR [Suspect]
     Indication: CARCINOID TUMOUR
     Dosage: 60 MG, EVERY 4 WEEKS
     Route: 030
     Dates: start: 20031228
  2. SANDOSTATIN LAR [Suspect]
     Dosage: 20MG
  3. SANDOSTATIN LAR [Suspect]
     Dosage: 60 MG, BIW
     Route: 030
     Dates: end: 20091014

REACTIONS (15)
  - ABDOMINAL ADHESIONS [None]
  - BLOOD PRESSURE DECREASED [None]
  - CONSTIPATION [None]
  - DEHYDRATION [None]
  - DIARRHOEA [None]
  - FLUSHING [None]
  - GASTROINTESTINAL TUBE INSERTION [None]
  - HYPOPHAGIA [None]
  - INFREQUENT BOWEL MOVEMENTS [None]
  - INJECTION SITE PAIN [None]
  - NAUSEA [None]
  - NECK PAIN [None]
  - SMALL INTESTINAL OBSTRUCTION [None]
  - STAPHYLOCOCCAL SEPSIS [None]
  - VOMITING [None]
